FAERS Safety Report 8418191-4 (Version None)
Quarter: 2012Q2

REPORT INFORMATION
  Report Type: 
  Country: None (occurrence: None)
  Receive Date: 20120323
  Receipt Date: 20110221
  Transmission Date: 20120825
  Serious: Yes (Hospitalization, Other)
  Sender: FDA-Public Use
  Company Number: 163-21880-11022866

PATIENT
  Age: 84 Year
  Sex: Female
  Weight: 54 kg

DRUGS (3)
  1. LENALIDOMIDE [Suspect]
     Indication: MULTIPLE MYELOMA
     Dosage: 25 MG, DAILY, PO ; 10 MG, 1 IN1 D, PO ; 5 MG, 1 IN 1 D, PO
     Route: 048
     Dates: start: 20090101
  2. LENALIDOMIDE [Suspect]
     Indication: MULTIPLE MYELOMA
     Dosage: 25 MG, DAILY, PO ; 10 MG, 1 IN1 D, PO ; 5 MG, 1 IN 1 D, PO
     Route: 048
     Dates: start: 20070101
  3. LENALIDOMIDE [Suspect]
     Indication: MULTIPLE MYELOMA
     Dosage: 25 MG, DAILY, PO ; 10 MG, 1 IN1 D, PO ; 5 MG, 1 IN 1 D, PO
     Route: 048
     Dates: start: 20070301, end: 20080101

REACTIONS (3)
  - PAIN IN EXTREMITY [None]
  - PNEUMONIA [None]
  - PARAESTHESIA [None]
